FAERS Safety Report 4342839-7 (Version None)
Quarter: 2004Q2

REPORT INFORMATION
  Report Type: 
  Country: None (occurrence: None)
  Receive Date: 20040416
  Receipt Date: 20040405
  Transmission Date: 20050107
  Serious: Yes (Other)
  Sender: FDA-Public Use
  Company Number: 200331033BWH

PATIENT
  Age: 45 Year
  Sex: Female
  Weight: 81.6475 kg

DRUGS (2)
  1. CIPROFLOXACIN HYDROCHLORIDE [Suspect]
     Indication: SPUTUM CULTURE POSITIVE
     Dosage: 500 MG, TOTAL DAILY, ORAL
     Route: 048
     Dates: start: 20031219
  2. PREVACID [Concomitant]

REACTIONS (2)
  - HOMICIDAL IDEATION [None]
  - TUBERCULIN TEST POSITIVE [None]
